FAERS Safety Report 18023724 (Version 1)
Quarter: 2020Q3

REPORT INFORMATION
  Report Type: Spontaneous
  Country: US (occurrence: US)
  Receive Date: 20200715
  Receipt Date: 20200715
  Transmission Date: 20201103
  Serious: No
  Sender: FDA-Public Use
  Company Number: US-ELI_LILLY_AND_COMPANY-US202007004852

PATIENT
  Sex: Female

DRUGS (2)
  1. FORTEO [Suspect]
     Active Substance: TERIPARATIDE
     Indication: OSTEOPENIA
     Dosage: 1 DOSAGE FORM, DAILY
     Route: 058
     Dates: start: 202006
  2. FORTEO [Suspect]
     Active Substance: TERIPARATIDE
     Indication: OSTEOPENIA
     Dosage: 1 DOSAGE FORM, DAILY
     Route: 058
     Dates: start: 202006

REACTIONS (2)
  - Incorrect dose administered [Unknown]
  - Off label use [Unknown]
